FAERS Safety Report 23827950 (Version 1)
Quarter: 2024Q2

REPORT INFORMATION
  Report Type: Spontaneous
  Country: GB (occurrence: GB)
  Receive Date: 20240507
  Receipt Date: 20240507
  Transmission Date: 20240715
  Serious: Yes (Life-Threatening, Hospitalization)
  Sender: FDA-Public Use
  Company Number: GB-STRIDES ARCOLAB LIMITED-2024SP005253

PATIENT
  Age: 3 Decade
  Sex: Female

DRUGS (8)
  1. PREDNISOLONE [Suspect]
     Active Substance: PREDNISOLONE
     Indication: Sarcoidosis
     Dosage: 40 MILLIGRAM
     Route: 065
  2. PREDNISOLONE [Suspect]
     Active Substance: PREDNISOLONE
     Dosage: UNK (DOSE WAS TAPERED)
     Route: 065
  3. PREDNISOLONE [Suspect]
     Active Substance: PREDNISOLONE
     Dosage: 15 MILLIGRAM, QD
     Route: 065
  4. PREDNISOLONE [Suspect]
     Active Substance: PREDNISOLONE
     Dosage: 1 MILLIGRAM/KILOGRAM
     Route: 065
  5. PREDNISOLONE [Suspect]
     Active Substance: PREDNISOLONE
     Dosage: UNK; REDUCING PREDNISOLONE
     Route: 065
  6. AZATHIOPRINE [Suspect]
     Active Substance: AZATHIOPRINE
     Indication: Sarcoidosis
     Dosage: UNK
     Route: 065
  7. METHOTREXATE [Suspect]
     Active Substance: METHOTREXATE
     Indication: Sarcoidosis
     Dosage: UNK
     Route: 065
  8. MYCOPHENOLATE MOFETIL [Suspect]
     Active Substance: MYCOPHENOLATE MOFETIL
     Indication: Sarcoidosis
     Dosage: UNK
     Route: 065

REACTIONS (8)
  - Hepatic function abnormal [Unknown]
  - Pneumonia fungal [Unknown]
  - Malassezia infection [Unknown]
  - Salmonellosis [Unknown]
  - Tuberculosis [Unknown]
  - Staphylococcal infection [Unknown]
  - Therapy non-responder [Unknown]
  - Off label use [Unknown]
